FAERS Safety Report 24232692 (Version 1)
Quarter: 2024Q3

REPORT INFORMATION
  Report Type: Spontaneous
  Country: US (occurrence: US)
  Receive Date: 20240821
  Receipt Date: 20240821
  Transmission Date: 20241017
  Serious: No
  Sender: RANBAXY
  Company Number: US-SUN PHARMACEUTICAL INDUSTRIES LTD-2024R1-430101

PATIENT
  Sex: Female

DRUGS (2)
  1. FEBUXOSTAT [Suspect]
     Active Substance: FEBUXOSTAT
     Indication: Gout
     Dosage: UNK
     Route: 065
     Dates: end: 20240123
  2. FEBUXOSTAT [Suspect]
     Active Substance: FEBUXOSTAT
     Dosage: UNK (FIVE ALTERNATIVE PILLS)
     Route: 065
     Dates: start: 20240125

REACTIONS (1)
  - Recalled product administered [Unknown]
